FAERS Safety Report 8784309 (Version 1)
Quarter: 2012Q4

REPORT INFORMATION
  Report Type: 
  Country: US (occurrence: US)
  Receive Date: 20120913
  Receipt Date: 20120913
  Transmission Date: 20130627
  Serious: No
  Sender: FDA-Public Use
  Company Number: US-PFIZER INC-2012224147

PATIENT
  Age: 66 Year
  Sex: Female
  Weight: 46.71 kg

DRUGS (7)
  1. CHANTIX [Suspect]
     Indication: SMOKING CESSATION THERAPY
     Dosage: 1 mg, daily
     Dates: start: 20110801, end: 20110915
  2. CHANTIX [Suspect]
     Dosage: 1 mg, 2x/day
     Dates: start: 2011
  3. LISINOPRIL [Concomitant]
     Indication: HYPERTENSION
     Dosage: 40 mg, (two tablets of 20mg) daily
  4. CIPROFLOXACIN [Concomitant]
     Indication: ANTIBIOTIC PROPHYLAXIS
     Dosage: 500 mg, 2x/day
  5. PREDNISONE [Concomitant]
     Indication: CHRONIC OBSTRUCTIVE PULMONARY DISEASE
     Dosage: 5 mg, daily
  6. FLEXERIL [Concomitant]
     Dosage: 5 mg, daily
  7. OMEPRAZOLE [Concomitant]
     Indication: GASTRIC DISORDER
     Dosage: 20 mg, daily

REACTIONS (4)
  - Flatulence [Unknown]
  - Constipation [Unknown]
  - Insomnia [Unknown]
  - Activities of daily living impaired [Unknown]
